FAERS Safety Report 8713662 (Version 3)
Quarter: 2013Q3

REPORT INFORMATION
  Report Type: Report from Study
  Country: GB (occurrence: GB)
  Receive Date: 20120808
  Receipt Date: 20130827
  Transmission Date: 20140515
  Serious: Yes (Hospitalization, Other)
  Sender: FDA-Public Use
  Company Number: GB-ABBOTT-12P-167-0964428-00

PATIENT
  Age: 69 Year
  Sex: Female
  Weight: 100 kg

DRUGS (2)
  1. HUMIRA 40 MG/ 0.8 ML PRE-FILLED SYRINGE [Suspect]
     Indication: RHEUMATOID ARTHRITIS
     Route: 058
     Dates: start: 20051222
  2. SULPHASALAZINE [Concomitant]
     Indication: PRODUCT USED FOR UNKNOWN INDICATION

REACTIONS (8)
  - Cardiac myxoma [Unknown]
  - Carotid arteriosclerosis [Unknown]
  - Palpitations [Unknown]
  - Dyspnoea [Unknown]
  - Chest discomfort [Unknown]
  - Coronary artery disease [Unknown]
  - Pleural effusion [Recovered/Resolved]
  - Angina pectoris [Unknown]
